FAERS Safety Report 4563803-9 (Version None)
Quarter: 2005Q1

REPORT INFORMATION
  Report Type: 
  Country: None (occurrence: None)
  Receive Date: 20050121
  Receipt Date: 20041215
  Transmission Date: 20050727
  Serious: No
  Sender: FDA-Public Use
  Company Number: USA041286428

PATIENT
  Sex: Male

DRUGS (1)
  1. CYMBALTA [Suspect]
     Dosage: 60 MG DAY

REACTIONS (3)
  - ARTHRALGIA [None]
  - BACK PAIN [None]
  - LIVER FUNCTION TEST ABNORMAL [None]
